FAERS Safety Report 18622172 (Version 1)
Quarter: 2020Q4

REPORT INFORMATION
  Report Type: Report from Study
  Country: CO (occurrence: CO)
  Receive Date: 20201216
  Receipt Date: 20201216
  Transmission Date: 20210114
  Serious: Yes (Other)
  Sender: FDA-Public Use
  Company Number: CO-AMGEN-COLSL2020202709

PATIENT
  Age: 20 Year
  Sex: Female

DRUGS (1)
  1. NPLATE [Suspect]
     Active Substance: ROMIPLOSTIM
     Indication: IMMUNE THROMBOCYTOPENIA
     Dosage: 250 MICROGRAM, QWK
     Route: 058
     Dates: start: 20200924

REACTIONS (1)
  - Thrombocytosis [Not Recovered/Not Resolved]
